FAERS Safety Report 20953808 (Version 1)
Quarter: 2022Q2

REPORT INFORMATION
  Report Type: Spontaneous
  Country: CN (occurrence: CN)
  Receive Date: 20220614
  Receipt Date: 20220614
  Transmission Date: 20220721
  Serious: Yes (Other)
  Sender: FDA-Public Use
  Company Number: CN-SUN PHARMACEUTICAL INDUSTRIES LTD-2022R1-340078

PATIENT
  Age: 45 Year
  Sex: Female

DRUGS (3)
  1. OXALIPLATIN [Suspect]
     Active Substance: OXALIPLATIN
     Indication: Cholangiocarcinoma
     Dosage: 100 MILLIGRAM/SQ. METER,D1,INTERVAL OF 3 WEEKS
     Route: 065
     Dates: start: 20200417, end: 20200821
  2. GEMCITABINE [Suspect]
     Active Substance: GEMCITABINE
     Indication: Cholangiocarcinoma
     Dosage: 1000 MILLIGRAM/SQ. METER,D1 AND D8,INTERVAL OF 3 WEEKS
     Route: 065
     Dates: start: 20200417, end: 20200812
  3. TIPRANAVIR [Concomitant]
     Active Substance: TIPRANAVIR
     Indication: Hepatitis B
     Dosage: UNK
     Route: 048

REACTIONS (6)
  - Thrombocytopenia [Recovering/Resolving]
  - Leukopenia [Recovering/Resolving]
  - Haematotoxicity [Recovering/Resolving]
  - Decreased appetite [Recovering/Resolving]
  - Nausea [Recovering/Resolving]
  - Vomiting [Recovering/Resolving]
